FAERS Safety Report 4607332-2 (Version None)
Quarter: 2005Q1

REPORT INFORMATION
  Report Type: 
  Country: None (occurrence: None)
  Receive Date: 20050310
  Receipt Date: 20050225
  Transmission Date: 20050727
  Serious: Yes (Other)
  Sender: FDA-Public Use
  Company Number: 2005-01-0969

PATIENT
  Age: 59 Year
  Sex: Female
  Weight: 50 kg

DRUGS (1)
  1. CLARITIN [Suspect]
     Indication: PRURITUS
     Dosage: 10 MG; ORAL
     Route: 048
     Dates: start: 20041111, end: 20050110

REACTIONS (1)
  - THROMBOCYTOPENIC PURPURA [None]
